FAERS Safety Report 5469629-6 (Version None)
Quarter: 2007Q3

REPORT INFORMATION
  Report Type: 
  Country: None (occurrence: None)
  Receive Date: 20070925
  Receipt Date: 20070925
  Transmission Date: 20080115
  Serious: Yes (Death)
  Sender: FDA-Public Use
  Company Number: None

PATIENT
  Age: 44 Year
  Sex: Male
  Weight: 79.3795 kg

DRUGS (2)
  1. LEXAPRO [Suspect]
     Indication: ANXIETY
     Dates: start: 20070815, end: 20070822
  2. LEXAPRO [Suspect]
     Indication: DEPRESSION
     Dates: start: 20070815, end: 20070822

REACTIONS (2)
  - COMPLETED SUICIDE [None]
  - IRRITABILITY [None]
